FAERS Safety Report 15135033 (Version 1)
Quarter: 2018Q3

REPORT INFORMATION
  Report Type: Spontaneous
  Country: NL (occurrence: NL)
  Receive Date: 20180712
  Receipt Date: 20180712
  Transmission Date: 20181010
  Serious: Yes (Hospitalization)
  Sender: FDA-Public Use
  Company Number: NL-TEVA-2018-NL-924024

PATIENT
  Age: 14 Year
  Sex: Female
  Weight: 46.5 kg

DRUGS (2)
  1. NAPROXEN ACCORD TABLET 250MG TABLET, 250 MG (MILLIGRAM) [Interacting]
     Active Substance: NAPROXEN SODIUM
     Indication: ARTHRITIS
     Dosage: 2X PER DAG 1 STUK
     Route: 065
     Dates: start: 201711, end: 20180601
  2. METHOTREXAAT 7,5 MG [Suspect]
     Active Substance: METHOTREXATE
     Indication: JUVENILE IDIOPATHIC ARTHRITIS
     Route: 065
     Dates: start: 201803

REACTIONS (2)
  - Gastric ulcer haemorrhage [Recovering/Resolving]
  - Drug interaction [Recovering/Resolving]

NARRATIVE: CASE EVENT DATE: 20180531
